FAERS Safety Report 19091897 (Version 1)
Quarter: 2021Q2

REPORT INFORMATION
  Report Type: Spontaneous
  Country: US (occurrence: US)
  Receive Date: 20210405
  Receipt Date: 20210405
  Transmission Date: 20210717
  Serious: Yes (Hospitalization)
  Sender: FDA-Public Use
  Company Number: None

PATIENT
  Age: 72 Year
  Sex: Male

DRUGS (2)
  1. WARFARIN (WARFARIN NA (GOLDEN STATE) 5MG TAB) [Suspect]
     Active Substance: WARFARIN SODIUM
     Indication: THROMBOSIS PROPHYLAXIS
  2. WARFARIN (WARFARIN NA (GOLDEN STATE) 5MG TAB) [Suspect]
     Active Substance: WARFARIN SODIUM
     Indication: THROMBOSIS PROPHYLAXIS
     Dates: start: 20181029, end: 20210218

REACTIONS (4)
  - Ulcer [None]
  - Anaemia [None]
  - Gastrointestinal haemorrhage [None]
  - Pulmonary embolism [None]

NARRATIVE: CASE EVENT DATE: 20210218
